FAERS Safety Report 10844296 (Version 2)
Quarter: 2015Q1

REPORT INFORMATION
  Report Type: Spontaneous
  Country: US (occurrence: US)
  Receive Date: 20150220
  Receipt Date: 20150327
  Transmission Date: 20150721
  Serious: Yes (Other)
  Sender: FDA-Public Use
  Company Number: US-PFIZER INC-2015065227

PATIENT
  Age: 58 Year
  Sex: Female
  Weight: 88 kg

DRUGS (2)
  1. LIPITOR [Suspect]
     Active Substance: ATORVASTATIN CALCIUM
     Indication: BLOOD CHOLESTEROL INCREASED
     Dosage: 10 MG, DAILY
     Route: 048
     Dates: end: 200911
  2. BABY ASPIRIN [Concomitant]
     Active Substance: ASPIRIN
     Indication: CARDIOVASCULAR EVENT PROPHYLAXIS
     Dosage: 1 DF, 1X/DAY
     Dates: start: 1995

REACTIONS (3)
  - Type 2 diabetes mellitus [Not Recovered/Not Resolved]
  - Blood glucose increased [Not Recovered/Not Resolved]
  - Cataract [Not Recovered/Not Resolved]

NARRATIVE: CASE EVENT DATE: 200207
